FAERS Safety Report 5156578-6 (Version None)
Quarter: 2006Q4

REPORT INFORMATION
  Report Type: 
  Country: None (occurrence: None)
  Receive Date: 20061122
  Receipt Date: 20061120
  Transmission Date: 20070319
  Serious: Yes (Hospitalization)
  Sender: FDA-Public Use
  Company Number: GB-ROXANE LABORATORIES, INC-2006-UK-04697UK

PATIENT
  Age: 56 Year
  Sex: Male

DRUGS (2)
  1. MORPHINE [Suspect]
  2. GABAPENTIN [Suspect]
     Indication: NEURALGIA
     Dates: start: 20060701

REACTIONS (2)
  - DEPRESSIVE SYMPTOM [None]
  - DRUG INTERACTION [None]
